FAERS Safety Report 8826590 (Version 1)
Quarter: 2012Q4

REPORT INFORMATION
  Report Type: 
  Country: NL (occurrence: NL)
  Receive Date: 20121005
  Receipt Date: 20121005
  Transmission Date: 20130627
  Serious: Yes (Life-Threatening)
  Sender: FDA-Public Use
  Company Number: NL-TEVA-361499ISR

PATIENT
  Sex: Female
  Weight: 70 kg

DRUGS (1)
  1. TRIMETHOPRIM [Suspect]
     Indication: URINARY TRACT INFECTION
     Dosage: 300 Milligram Daily;
     Route: 048
     Dates: start: 201208

REACTIONS (1)
  - Renal failure acute [Unknown]
